FAERS Safety Report 4869800-8 (Version None)
Quarter: 2005Q4

REPORT INFORMATION
  Report Type: 
  Country: None (occurrence: None)
  Receive Date: 20051223
  Receipt Date: 20051212
  Transmission Date: 20060501
  Serious: Yes (Death, Other)
  Sender: FDA-Public Use
  Company Number: US_0502111748

PATIENT
  Age: 10 Year
  Sex: Male

DRUGS (1)
  1. PROZAC [Suspect]
     Indication: DEPRESSION

REACTIONS (7)
  - AGGRESSION [None]
  - FAMILY STRESS [None]
  - HOMICIDE [None]
  - HOSTILITY [None]
  - MANIA [None]
  - VICTIM OF CHILD ABUSE [None]
  - VICTIM OF SEXUAL ABUSE [None]
